FAERS Safety Report 21397218 (Version 9)
Quarter: 2025Q4

REPORT INFORMATION
  Report Type: Report from Study
  Country: US (occurrence: US)
  Receive Date: 20220930
  Receipt Date: 20251218
  Transmission Date: 20260118
  Serious: Yes (Other)
  Sender: PFIZER
  Company Number: US-PFIZER INC-PV202200074094

PATIENT
  Age: 68 Year
  Sex: Male

DRUGS (2)
  1. XELJANZ [Suspect]
     Active Substance: TOFACITINIB CITRATE
     Dosage: 10 MG, 2X/DAY
  2. XELJANZ [Suspect]
     Active Substance: TOFACITINIB CITRATE
     Dosage: 5 MG, 2X/DAY

REACTIONS (9)
  - Haemorrhage [Unknown]
  - Nephrolithiasis [Unknown]
  - Drug ineffective [Unknown]
  - Weight decreased [Unknown]
  - Illness [Unknown]
  - Fatigue [Unknown]
  - Condition aggravated [Unknown]
  - Abdominal pain [Unknown]
  - Urinary tract infection [Unknown]
